FAERS Safety Report 12230951 (Version 2)
Quarter: 2016Q3

REPORT INFORMATION
  Report Type: Spontaneous
  Country: US (occurrence: US)
  Receive Date: 20160401
  Receipt Date: 20160715
  Transmission Date: 20161109
  Serious: Yes (Hospitalization, Other)
  Sender: FDA-Public Use
  Company Number: PHEH2016US007711

PATIENT
  Age: 73 Year
  Sex: Male
  Weight: 136.5 kg

DRUGS (2)
  1. COSENTYX [Suspect]
     Active Substance: SECUKINUMAB
     Indication: PSORIASIS
     Dosage: 300 MG, QW4
     Route: 058
     Dates: start: 20150311
  2. DOVONEX [Concomitant]
     Active Substance: CALCIPOTRIENE
     Indication: PRODUCT USED FOR UNKNOWN INDICATION
     Route: 065

REACTIONS (15)
  - Eczema [Unknown]
  - Haemorrhage [Unknown]
  - Bacterial infection [Recovered/Resolved]
  - Erythema [Unknown]
  - Xerosis [Unknown]
  - Papule [Unknown]
  - Pyrexia [Recovered/Resolved]
  - Psoriasis [Unknown]
  - Skin exfoliation [Unknown]
  - Stasis dermatitis [Unknown]
  - Scab [Unknown]
  - Cellulitis [Recovered/Resolved]
  - Drug ineffective [Not Recovered/Not Resolved]
  - Oedema [Unknown]
  - Skin plaque [Unknown]

NARRATIVE: CASE EVENT DATE: 20160201
